FAERS Safety Report 17079978 (Version 1)
Quarter: 2019Q4

REPORT INFORMATION
  Report Type: Spontaneous
  Country: US (occurrence: US)
  Receive Date: 20191029
  Receipt Date: 20191029
  Transmission Date: 20200122
  Serious: No
  Sender: FDA-Public Use
  Company Number: None

PATIENT
  Sex: Female

DRUGS (1)
  1. BOSULIF [Suspect]
     Active Substance: BOSUTINIB MONOHYDRATE
     Indication: MYELOID LEUKAEMIA
     Route: 048
     Dates: start: 20191004

REACTIONS (7)
  - Myalgia [None]
  - Headache [None]
  - Nausea [None]
  - Mental impairment [None]
  - Diarrhoea [None]
  - Fatigue [None]
  - Arthralgia [None]
